FAERS Safety Report 8531295-0 (Version None)
Quarter: 2012Q3

REPORT INFORMATION
  Report Type: 
  Country: None (occurrence: None)
  Receive Date: 20120723
  Receipt Date: 20120719
  Transmission Date: 20120928
  Serious: No
  Sender: FDA-Public Use
  Company Number: US-TEVA-346895USA

PATIENT
  Sex: Female
  Weight: 52.21 kg

DRUGS (1)
  1. PLAN B ONE-STEP [Suspect]
     Indication: POST COITAL CONTRACEPTION
     Dosage: 1.5 MILLIGRAM;
     Route: 048
     Dates: start: 20120701, end: 20120701

REACTIONS (5)
  - POLLAKIURIA [None]
  - INCREASED APPETITE [None]
  - FEELING HOT [None]
  - INSOMNIA [None]
  - FATIGUE [None]
